FAERS Safety Report 24379116 (Version 1)
Quarter: 2024Q3

REPORT INFORMATION
  Report Type: Spontaneous
  Country: RU (occurrence: RU)
  Receive Date: 20240930
  Receipt Date: 20240930
  Transmission Date: 20241016
  Serious: Yes (Death, Hospitalization, Other)
  Sender: SANOFI AVENTIS
  Company Number: RU-SA-2024SA280246

PATIENT
  Age: 55 Year
  Sex: Male
  Weight: 81 kg

DRUGS (2)
  1. ARAVA [Suspect]
     Active Substance: LEFLUNOMIDE
     Indication: Rheumatoid arthritis
     Dosage: 20 MG, QD
     Route: 048
     Dates: start: 202104, end: 20240709
  2. LEVILIMAB [Suspect]
     Active Substance: LEVILIMAB
     Indication: Rheumatoid arthritis
     Dosage: 162 UG, QW
     Route: 058
     Dates: start: 20230531, end: 20230707

REACTIONS (2)
  - Haemorrhage [Fatal]
  - Osteomyelitis [Not Recovered/Not Resolved]

NARRATIVE: CASE EVENT DATE: 20240606
